FAERS Safety Report 19793835 (Version 1)
Quarter: 2021Q3

REPORT INFORMATION
  Report Type: Spontaneous
  Country: US (occurrence: US)
  Receive Date: 20210906
  Receipt Date: 20210906
  Transmission Date: 20211014
  Serious: No
  Sender: FDA-Public Use
  Company Number: US-P+L DEVELOPMENTS OF NEWYORK CORPORATION-2118025

PATIENT
  Sex: Female

DRUGS (1)
  1. NICOTINE POLACRILEX [Suspect]
     Active Substance: NICOTINE
     Indication: SMOKING CESSATION THERAPY
     Route: 048

REACTIONS (3)
  - Oral discomfort [Recovered/Resolved]
  - Oral pain [Recovered/Resolved]
  - Stomatitis [Recovered/Resolved]
